FAERS Safety Report 12256767 (Version 1)
Quarter: 2016Q2

REPORT INFORMATION
  Report Type: Spontaneous
  Country: US (occurrence: US)
  Receive Date: 20160412
  Receipt Date: 20160412
  Transmission Date: 20160815
  Serious: Yes (Other)
  Sender: FDA-Public Use
  Company Number: US-GLAXOSMITHKLINE-US2016GSK042915

PATIENT

DRUGS (1)
  1. BENLYSTA [Suspect]
     Active Substance: BELIMUMAB
     Indication: PRODUCT USED FOR UNKNOWN INDICATION
     Dosage: UNK, EVERY 6 OR 8 WEEKS

REACTIONS (4)
  - Ill-defined disorder [Unknown]
  - Inappropriate schedule of drug administration [Recovered/Resolved]
  - Drug prescribing error [Recovered/Resolved]
  - Systemic lupus erythematosus [Unknown]
